FAERS Safety Report 8997989 (Version 1)
Quarter: 2013Q1

REPORT INFORMATION
  Report Type: Report from Study
  Country: DE (occurrence: DE)
  Receive Date: 20130104
  Receipt Date: 20130104
  Transmission Date: 20140127
  Serious: Yes (Death)
  Sender: FDA-Public Use
  Company Number: DE-ROCHE-1175665

PATIENT
  Sex: 0

DRUGS (3)
  1. TENECTEPLASE [Suspect]
     Indication: ACUTE MYOCARDIAL INFARCTION
     Route: 065
  2. ASPIRIN [Suspect]
     Indication: ACUTE MYOCARDIAL INFARCTION
     Dosage: 150-325 MG
     Route: 048
  3. HEPARIN [Suspect]
     Indication: ACUTE MYOCARDIAL INFARCTION
     Dosage: 70 U/KG BOLUS DOSE, ADDITIONAL BOLUS DOSE COULD BE ADDED TO REACH AN ACTIVATED CLOTTING TIME OF 250
     Route: 042

REACTIONS (1)
  - Death [Fatal]
